FAERS Safety Report 21177862 (Version 1)
Quarter: 2022Q3

REPORT INFORMATION
  Report Type: Spontaneous
  Country: US (occurrence: US)
  Receive Date: 20220805
  Receipt Date: 20220805
  Transmission Date: 20221026
  Serious: Yes (Other)
  Sender: FDA-Public Use
  Company Number: US-SA-SAC20220803001312

PATIENT
  Age: 46 Year
  Sex: Female

DRUGS (3)
  1. ZANTAC [Suspect]
     Active Substance: RANITIDINE HYDROCHLORIDE
     Indication: Dyspepsia
     Dosage: 25 MG FREQ- DAILY
     Route: 065
     Dates: start: 200506
  2. ZANTAC [Suspect]
     Active Substance: RANITIDINE HYDROCHLORIDE
     Indication: Gastrooesophageal reflux disease
     Dosage: 75MG FREQ- DAILY
     Route: 065
  3. ZANTAC [Suspect]
     Active Substance: RANITIDINE HYDROCHLORIDE
     Dosage: 150MG FREQ- DAILY
     Route: 065
     Dates: end: 201206

REACTIONS (1)
  - Breast cancer stage I [Recovered/Resolved]

NARRATIVE: CASE EVENT DATE: 20080201
